FAERS Safety Report 26042822 (Version 2)
Quarter: 2025Q4

REPORT INFORMATION
  Report Type: Spontaneous
  Country: JP (occurrence: JP)
  Receive Date: 20251113
  Receipt Date: 20251211
  Transmission Date: 20260118
  Serious: Yes (Other)
  Sender: ELI LILLY AND COMPANY
  Company Number: JP-NShinyaku-EVA202506532ZZLILLY

PATIENT
  Age: 47 Year
  Sex: Female

DRUGS (24)
  1. TADALAFIL [Suspect]
     Active Substance: TADALAFIL
     Indication: Pulmonary arterial hypertension
     Dosage: UNKNOWN
     Route: 048
     Dates: start: 2018, end: 2019
  2. UPTRAVI [Suspect]
     Active Substance: SELEXIPAG
     Indication: Pulmonary arterial hypertension
     Dosage: 1.2 MG, DAILY
     Route: 048
     Dates: start: 2017
  3. UPTRAVI [Suspect]
     Active Substance: SELEXIPAG
     Dosage: 1.6 MG, DAILY
     Route: 048
     Dates: start: 20250214, end: 20250214
  4. UPTRAVI [Suspect]
     Active Substance: SELEXIPAG
     Dosage: 1.2 MG, DAILY
     Route: 048
     Dates: start: 20250215
  5. UPTRAVI [Suspect]
     Active Substance: SELEXIPAG
     Dosage: 1.6 MG, DAILY
     Route: 048
     Dates: start: 20250221
  6. UPTRAVI [Suspect]
     Active Substance: SELEXIPAG
     Dosage: 2 MG, DAILY
     Route: 048
     Dates: start: 20250228
  7. UPTRAVI [Suspect]
     Active Substance: SELEXIPAG
     Dosage: 2.4 MG, DAILY
     Route: 048
     Dates: start: 20250319
  8. UPTRAVI [Suspect]
     Active Substance: SELEXIPAG
     Dosage: 2.2 MG, MORNING: 0.8 MG, NOON: 0.4 MG, EVENING: 1.0 MG
     Route: 048
     Dates: start: 20250401
  9. UPTRAVI [Suspect]
     Active Substance: SELEXIPAG
     Dosage: 0.8 MG, MORNING, NOON, EVENING
     Route: 048
     Dates: start: 20250414
  10. UPTRAVI [Suspect]
     Active Substance: SELEXIPAG
     Dosage: 2.6 MG, MORNING: 0.8 MG, NOON: 0.8 MG, EVENING: 0.8 MG, BEFORE SLEEPING: 0.2 MG
     Route: 048
     Dates: start: 20250519
  11. UPTRAVI [Suspect]
     Active Substance: SELEXIPAG
     Dosage: 2.8 MG, MORNING: 0.8 MG, NOON: 0.8 MG, EVENING: 0.8 MG, BEFORE SLEEPING: 0.4 MG
     Route: 048
     Dates: start: 20250630
  12. UPTRAVI [Suspect]
     Active Substance: SELEXIPAG
     Dosage: 2.8 MG, MORNING: 1.2 MG, EVENING: 1.2 MG, BEFORE SLEEPING: 0.4 MG
     Route: 048
     Dates: start: 20250804
  13. UPTRAVI [Suspect]
     Active Substance: SELEXIPAG
     Dosage: 2.6 MG, MORNING: 1.2 MG, EVENING: 1.2 MG, BEFORE SLEEPING: 0.2 MG
     Route: 048
     Dates: start: 20250825
  14. UPTRAVI [Suspect]
     Active Substance: SELEXIPAG
     Dosage: 1.2 MG, BID
     Route: 048
     Dates: start: 20251006
  15. DIGOXIN [Concomitant]
     Active Substance: DIGOXIN
     Dosage: UNKNOWN
     Dates: end: 20250714
  16. ADEMPAS [Concomitant]
     Active Substance: RIOCIGUAT
     Indication: Pulmonary arterial hypertension
     Dosage: 3-3.5 MG/DAY
     Route: 048
     Dates: start: 2019
  17. ADEMPAS [Concomitant]
     Active Substance: RIOCIGUAT
     Dosage: 4.5 MG, DAILY
     Route: 048
     Dates: start: 20250210, end: 202502
  18. ADEMPAS [Concomitant]
     Active Substance: RIOCIGUAT
     Dosage: 6 MG, DAILY
     Route: 048
     Dates: start: 20250226
  19. ICOSAPENT ETHYL [Concomitant]
     Active Substance: ICOSAPENT ETHYL
     Dosage: UNKNOWN
     Route: 048
  20. LOXOPROFEN SODIUM DIHYDRATE [Concomitant]
     Active Substance: LOXOPROFEN SODIUM DIHYDRATE
     Indication: Pain
     Dosage: UNK UNK, PRN
     Route: 048
  21. BIO-THREE [Concomitant]
     Active Substance: HERBALS
     Dosage: UNKNOWN
     Route: 048
  22. PREDNISOLONE [Concomitant]
     Active Substance: PREDNISOLONE
     Indication: IgA nephropathy
     Dates: start: 200908
  23. PREDNISOLONE [Concomitant]
     Active Substance: PREDNISOLONE
     Dosage: UNKNOWN, GRADUALLY REDUCED
  24. OPSUMIT [Concomitant]
     Active Substance: MACITENTAN
     Indication: Pulmonary arterial hypertension
     Dosage: 10 MG, DAILY
     Route: 048
     Dates: start: 2016

REACTIONS (17)
  - Pulmonary arterial hypertension [Unknown]
  - Diarrhoea [Recovering/Resolving]
  - Diarrhoea [Recovering/Resolving]
  - Faeces soft [Not Recovered/Not Resolved]
  - Ventilation perfusion mismatch [Unknown]
  - Cardiac tamponade [Unknown]
  - COVID-19 [Recovered/Resolved]
  - Middle ear effusion [Recovered/Resolved]
  - Rheumatoid arthritis [Recovered/Resolved]
  - Nausea [Recovered/Resolved]
  - Myalgia [Recovered/Resolved]
  - Abdominal pain [Not Recovered/Not Resolved]
  - Headache [Not Recovered/Not Resolved]
  - Nausea [Not Recovered/Not Resolved]
  - Myalgia [Not Recovered/Not Resolved]
  - Malaise [Recovered/Resolved]
  - Nausea [Unknown]

NARRATIVE: CASE EVENT DATE: 20230101
